FAERS Safety Report 4407548-4 (Version None)
Quarter: 2004Q3

REPORT INFORMATION
  Report Type: 
  Country: None (occurrence: None)
  Receive Date: 20040721
  Receipt Date: 20040708
  Transmission Date: 20050211
  Serious: Yes (Death, Other)
  Sender: FDA-Public Use
  Company Number: 2004036139

PATIENT
  Age: 25 Year
  Sex: Male
  Weight: 70 kg

DRUGS (6)
  1. CYCLOKAPRON (TRANEXAMIC ACID) [Suspect]
     Indication: HAEMORRHAGE
     Dosage: 500 MG Q8H, INTRAVENOUS
     Route: 042
     Dates: start: 20040429, end: 20040510
  2. GRANULOCYTE COLONY STIMULATING FACTOR (GRANULOCYTE COLONY SITIMULATING [Concomitant]
  3. MEROPENEM(MEROPENEM) [Concomitant]
  4. VANCOMYCIN [Concomitant]
  5. AMPHOTERICIN B [Concomitant]
  6. DESMOPRESSIN  (DESMOPRESSIN) [Concomitant]

REACTIONS (8)
  - CEREBROVASCULAR ACCIDENT [None]
  - EMBOLISM [None]
  - HAEMODYNAMIC INSTABILITY [None]
  - ISCHAEMIA [None]
  - PULSE ABSENT [None]
  - RADIAL PULSE ABNORMAL [None]
  - RENAL DISORDER [None]
  - RENAL INFARCT [None]
